FAERS Safety Report 9537155 (Version 2)
Quarter: 2013Q4

REPORT INFORMATION
  Report Type: Spontaneous
  Country: US (occurrence: US)
  Receive Date: 20130919
  Receipt Date: 20131007
  Transmission Date: 20140711
  Serious: Yes (Hospitalization)
  Sender: FDA-Public Use
  Company Number: US-BAXTER-2013BAX036230

PATIENT
  Age: 37 Year
  Sex: Male

DRUGS (2)
  1. DIANEAL LOW CALCIUM [Suspect]
     Indication: PERITONEAL DIALYSIS
     Route: 033
     Dates: start: 2010, end: 20130708
  2. DIANEAL LOW CALCIUM [Suspect]
     Route: 033
     Dates: start: 20130920

REACTIONS (3)
  - Peritonitis bacterial [Unknown]
  - Tooth infection [Unknown]
  - Tooth fracture [Unknown]
